FAERS Safety Report 17534062 (Version 2)
Quarter: 2020Q2

REPORT INFORMATION
  Report Type: Spontaneous
  Country: US (occurrence: US)
  Receive Date: 20200312
  Receipt Date: 20200415
  Transmission Date: 20200713
  Serious: Yes (Hospitalization, Other)
  Sender: FDA-Public Use
  Company Number: US-HARMONY BIOSCIENCES-2020HMY00205

PATIENT
  Age: 43 Year
  Sex: Male
  Weight: 87.98 kg

DRUGS (10)
  1. WAKIX [Suspect]
     Active Substance: PITOLISANT HYDROCHLORIDE
     Dosage: 35.6 MG, 1X/DAY UPON WAKING
     Route: 048
     Dates: start: 202002
  2. NEXIUM [Concomitant]
     Active Substance: ESOMEPRAZOLE MAGNESIUM
  3. XYREM [Suspect]
     Active Substance: SODIUM OXYBATE
  4. EUFLEXXA [Concomitant]
     Active Substance: HYALURONATE SODIUM
     Route: 014
  5. LISINOPRIL. [Concomitant]
     Active Substance: LISINOPRIL
     Dosage: LOW DOSE
  6. WAKIX [Suspect]
     Active Substance: PITOLISANT HYDROCHLORIDE
     Indication: NARCOLEPSY
     Dosage: 35.6 MG, 1X/DAY UPON WAKING
     Route: 048
     Dates: start: 2019, end: 20200202
  7. FISH OIL [Concomitant]
     Active Substance: FISH OIL
  8. VYVANSE [Concomitant]
     Active Substance: LISDEXAMFETAMINE DIMESYLATE
  9. ALL-IN-ONE FOR HEALTHY JOINTS (CHONDROITIN; TURMERIC; MSM) [Concomitant]
  10. MULTIVITAMIN [Concomitant]
     Active Substance: VITAMINS

REACTIONS (9)
  - Malaise [Recovered/Resolved]
  - Pyrexia [Recovered/Resolved]
  - Blood potassium decreased [Unknown]
  - Product dose omission [Recovered/Resolved]
  - Nausea [Unknown]
  - Dyspnoea [Recovered/Resolved]
  - Thyroid function test abnormal [Unknown]
  - Viral infection [Recovered/Resolved]
  - Asthenia [Recovered/Resolved]

NARRATIVE: CASE EVENT DATE: 202002
